FAERS Safety Report 5979899-3 (Version None)
Quarter: 2008Q4

REPORT INFORMATION
  Report Type: 
  Country: None (occurrence: None)
  Receive Date: 20081205
  Receipt Date: 20081202
  Transmission Date: 20090506
  Serious: Yes (Life-Threatening)
  Sender: FDA-Public Use
  Company Number: AR-ASTRAZENECA-2008UW26750

PATIENT
  Age: 87 Year
  Sex: Male

DRUGS (3)
  1. QUETIAPINE FUMARATE [Suspect]
     Route: 048
     Dates: start: 20081024
  2. DONEPEZIL HCL [Suspect]
     Indication: DEMENTIA ALZHEIMER'S TYPE
     Dates: start: 20080716, end: 20081119
  3. MEMANTINE HCL [Concomitant]

REACTIONS (4)
  - CEREBRAL HAEMORRHAGE [None]
  - DELUSION [None]
  - HALLUCINATION, AUDITORY [None]
  - SUBDURAL HAEMATOMA [None]
